FAERS Safety Report 24170264 (Version 2)
Quarter: 2024Q3

REPORT INFORMATION
  Report Type: Spontaneous
  Country: US (occurrence: US)
  Receive Date: 20240803
  Receipt Date: 20240924
  Transmission Date: 20241017
  Serious: Yes (Other)
  Sender: AUROBINDO
  Company Number: US-AUROBINDO-AUR-APL-2024-037914

PATIENT
  Age: 35 Year
  Sex: Male

DRUGS (1)
  1. SEVELAMER CARBONATE [Suspect]
     Active Substance: SEVELAMER CARBONATE
     Indication: End stage renal disease
     Dosage: 2400 MILLIGRAM, 3 TIMES A DAY
     Route: 065

REACTIONS (4)
  - Ischaemic enteritis [Recovered/Resolved]
  - Haematochezia [Recovered/Resolved]
  - Mucosal necrosis [Recovered/Resolved]
  - Abdominal pain [Recovered/Resolved]
